FAERS Safety Report 4971383-9 (Version None)
Quarter: 2006Q2

REPORT INFORMATION
  Report Type: 
  Country: None (occurrence: None)
  Receive Date: 20060406
  Receipt Date: 20060403
  Transmission Date: 20061013
  Serious: Yes (Other)
  Sender: FDA-Public Use
  Company Number: 200610379GDS

PATIENT
  Age: 50 Year
  Sex: Male

DRUGS (1)
  1. VARDENAFIL [Suspect]
     Indication: SEXUAL DYSFUNCTION
     Dosage: 10 MG, ONCE, ORAL
     Route: 048

REACTIONS (2)
  - ATRIAL FIBRILLATION [None]
  - SELF-MEDICATION [None]
